FAERS Safety Report 9571916 (Version 1)
Quarter: 2013Q4

REPORT INFORMATION
  Report Type: Report from Study
  Country: US (occurrence: US)
  Receive Date: 20131001
  Receipt Date: 20131001
  Transmission Date: 20140711
  Serious: Yes (Hospitalization)
  Sender: FDA-Public Use
  Company Number: US-ELI_LILLY_AND_COMPANY-US201309009041

PATIENT
  Age: 58 Year
  Sex: Male
  Weight: 108.2 kg

DRUGS (4)
  1. CETUXIMAB [Suspect]
     Indication: BLADDER CANCER
     Dosage: UNK, UNKNOWN
     Route: 065
  2. CETUXIMAB [Suspect]
     Dosage: 1125 MG, OTHER
     Route: 042
     Dates: start: 20091021
  3. GEMCITABINE HYDROCHLORIDE [Suspect]
     Indication: BLADDER CANCER
     Dosage: UNK
  4. CISPLATIN [Suspect]
     Indication: BLADDER CANCER
     Dosage: UNK UNK, OTHER

REACTIONS (3)
  - Lung infiltration [Unknown]
  - Pleural effusion [Unknown]
  - Pneumonitis [Unknown]
